FAERS Safety Report 18564276 (Version 5)
Quarter: 2021Q1

REPORT INFORMATION
  Report Type: Spontaneous
  Country: JP (occurrence: JP)
  Receive Date: 20201201
  Receipt Date: 20210203
  Transmission Date: 20210419
  Serious: Yes (Hospitalization, Other)
  Sender: FDA-Public Use
  Company Number: JP-ASTELLAS-2020JP018578

PATIENT
  Age: 55 Year
  Sex: Male

DRUGS (6)
  1. PREDNISOLONE. [Concomitant]
     Active Substance: PREDNISOLONE
     Indication: PRODUCT USED FOR UNKNOWN INDICATION
     Dosage: UNK UNK, UNKNOWN FREQ.
     Route: 048
  2. PROGRAF [Suspect]
     Active Substance: TACROLIMUS
     Indication: IDIOPATHIC PULMONARY FIBROSIS
     Dosage: 2 MG/DAY, UNKNOWN FREQ.
     Route: 048
     Dates: start: 201110
  3. PREDNISOLONE. [Concomitant]
     Active Substance: PREDNISOLONE
     Dosage: 6 MG/DAY, UNKNOWN FREQ.
     Route: 048
  4. OFEV [Concomitant]
     Active Substance: NINTEDANIB
     Indication: PRODUCT USED FOR UNKNOWN INDICATION
     Dosage: UNK UNK, UNKNOWN FREQ.
     Route: 048
     Dates: start: 201706
  5. OFEV [Concomitant]
     Active Substance: NINTEDANIB
     Dosage: 200 MG/DAY, UNKNOWN FREQ.
     Route: 048
     Dates: start: 2019
  6. PROGRAF [Suspect]
     Active Substance: TACROLIMUS
     Indication: IDIOPATHIC INTERSTITIAL PNEUMONIA
     Dosage: 3.5 MG/DAY, UNKNOWN FREQ.
     Route: 048
     Dates: start: 201706

REACTIONS (3)
  - Amyotrophic lateral sclerosis [Not Recovered/Not Resolved]
  - Monoplegia [Recovered/Resolved]
  - Off label use [Unknown]

NARRATIVE: CASE EVENT DATE: 201110
